FAERS Safety Report 5984423-5 (Version None)
Quarter: 2008Q4

REPORT INFORMATION
  Report Type: 
  Country: None (occurrence: None)
  Receive Date: 20081208
  Receipt Date: 20080915
  Transmission Date: 20090506
  Serious: No
  Sender: FDA-Public Use
  Company Number: US-AMGEN-KDL307443

PATIENT
  Sex: Female

DRUGS (3)
  1. ENBREL [Suspect]
     Indication: PYODERMA GANGRENOSUM
     Dates: start: 20080829
  2. ENBREL [Suspect]
     Indication: ARTHRITIS
  3. ANTDEPRESSANT NOS [Concomitant]

REACTIONS (6)
  - FAECES DISCOLOURED [None]
  - FUNGAL INFECTION [None]
  - PRURITUS GENITAL [None]
  - SKIN EXFOLIATION [None]
  - URINE ABNORMALITY [None]
  - VULVAL ERYTHEMA [None]
